FAERS Safety Report 6590981-2 (Version None)
Quarter: 2010Q1

REPORT INFORMATION
  Report Type: 
  Country: None (occurrence: None)
  Receive Date: 20100219
  Receipt Date: 20100209
  Transmission Date: 20100710
  Serious: Yes (Hospitalization, Other)
  Sender: FDA-Public Use
  Company Number: US-ELI_LILLY_AND_COMPANY-US201002002379

PATIENT
  Sex: Female

DRUGS (15)
  1. HUMALOG [Suspect]
     Indication: DIABETES MELLITUS
     Dosage: 2 U, 3/D
  2. HUMULIN R [Suspect]
     Indication: DIABETES MELLITUS
     Dosage: 18 U, EACH MORNING
  3. HUMULIN R [Suspect]
     Dosage: 10 U, EACH EVENING
  4. NOVOLIN [Concomitant]
  5. AMITRIPTYLINE HCL [Concomitant]
     Dosage: 50 MG, EACH EVENING
  6. SOLEXA [Concomitant]
     Dosage: 12 MG, DAILY (1/D)
  7. COLACE [Concomitant]
     Dosage: 100 MG, 2/D
  8. CRESTOR [Concomitant]
     Dosage: 10 MG, EACH EVENING
  9. FERROUS SULFATE TAB [Concomitant]
     Dosage: 325 MG, DAILY (1/D)
  10. HYDROCHLOROTHIAZIDE [Concomitant]
     Dosage: 25 MG, DAILY (1/D)
  11. LANTUS [Concomitant]
     Dosage: 17 U, EACH EVENING
  12. LISINOPRIL [Concomitant]
     Dosage: 5 MG, DAILY (1/D)
  13. LORATADINE [Concomitant]
     Dosage: 10 MG, DAILY (1/D)
  14. NEXIUM [Concomitant]
     Dosage: 40 MG, DAILY (1/D)
  15. VITAMINS [Concomitant]

REACTIONS (3)
  - BLINDNESS [None]
  - DRUG EXPOSURE DURING PREGNANCY [None]
  - HOSPITALISATION [None]
